FAERS Safety Report 10726696 (Version 1)
Quarter: 2015Q1

REPORT INFORMATION
  Report Type: Spontaneous
  Country: FR (occurrence: FR)
  Receive Date: 20150121
  Receipt Date: 20150121
  Transmission Date: 20150721
  Serious: Yes (Hospitalization)
  Sender: FDA-Public Use
  Company Number: FR-TEVA-535036ISR

PATIENT
  Age: 46 Year
  Sex: Male

DRUGS (29)
  1. VINCRISTINE TEVA [Suspect]
     Active Substance: VINCRISTINE
     Dosage: INDUCTION CHEMOTHERAPY ACCORDING TO GRALL 2005 PROTOCOL
     Route: 042
     Dates: start: 20140417
  2. PREDNISONE. [Suspect]
     Active Substance: PREDNISONE
     Dosage: INDUCTION CHEMOTHERAPY ACCORDING TO GRALL 2005 PROTOCOL
     Route: 048
     Dates: start: 20140416
  3. ENDOXAN [Suspect]
     Active Substance: CYCLOPHOSPHAMIDE
     Indication: ACUTE LYMPHOCYTIC LEUKAEMIA
     Dosage: INDUCTION CHEMOTHERAPY ACCORDING TO GRALL 2005 PROTOCOL
     Route: 042
     Dates: start: 20140410
  4. PREDNISONE. [Suspect]
     Active Substance: PREDNISONE
     Indication: ACUTE LYMPHOCYTIC LEUKAEMIA
     Dates: start: 20140403
  5. KIDROLASE [Suspect]
     Active Substance: ASPARAGINASE
     Dosage: INDUCTION CHEMOTHERAPY ACCORDING TO GRALL 2005 PROTOCOL
     Route: 042
     Dates: start: 20140419
  6. KIDROLASE [Suspect]
     Active Substance: ASPARAGINASE
     Dosage: INDUCTION CHEMOTHERAPY ACCORDING TO GRALL 2005 PROTOCOL
     Route: 042
     Dates: start: 20140429
  7. KIDROLASE [Suspect]
     Active Substance: ASPARAGINASE
     Dosage: INDUCTION CHEMOTHERAPY ACCORDING TO GRALL 2005 PROTOCOL
     Route: 042
     Dates: start: 20140501
  8. KIDROLASE [Suspect]
     Active Substance: ASPARAGINASE
     Dosage: NEW CONSOLIDATION CHEMOTHERAPY NUMBER 2
  9. CYTARABINE. [Suspect]
     Active Substance: CYTARABINE
     Dosage: INDUCTION CHEMOTHERAPY ACCORDING TO GRALL 2005 PROTOCOL
     Route: 037
     Dates: start: 20140417
  10. CYTARABINE. [Suspect]
     Active Substance: CYTARABINE
     Dosage: AT DAY 1 AND DAY 2 OF A NEW CONSOLIDATION CHEMOTHERAPY NUMBER 2
     Route: 037
     Dates: start: 20140730, end: 20140731
  11. KIDROLASE [Suspect]
     Active Substance: ASPARAGINASE
     Dosage: NEW CONSOLIDATION CHEMOTHERAPY
     Route: 058
     Dates: start: 20140812
  12. KIDROLASE [Suspect]
     Active Substance: ASPARAGINASE
     Dosage: NEW CONSOLIDATION CHEMOTHERAPY
     Dates: start: 20140814
  13. CYTARABINE. [Suspect]
     Active Substance: CYTARABINE
     Dosage: INDUCTION CHEMOTHERAPY ACCORDING TO GRALL 2005 PROTOCOL
     Route: 037
     Dates: start: 20140410
  14. KIDROLASE [Suspect]
     Active Substance: ASPARAGINASE
     Dosage: NEW CONSOLIDATION CHEMOTHERAPY NUMBER 2
     Route: 058
     Dates: start: 201408
  15. METHOTREXATE (METHOTREXATE SODIUM) [Suspect]
     Active Substance: METHOTREXATE SODIUM
     Indication: ACUTE LYMPHOCYTIC LEUKAEMIA
     Route: 037
     Dates: start: 20140403
  16. CYTARABINE. [Suspect]
     Active Substance: CYTARABINE
     Indication: ACUTE LYMPHOCYTIC LEUKAEMIA
     Route: 037
     Dates: start: 20140403
  17. COVERSYL 5 MG [Concomitant]
  18. VINCRISTINE TEVA [Suspect]
     Active Substance: VINCRISTINE
     Indication: ACUTE LYMPHOCYTIC LEUKAEMIA
     Dosage: INDUCTION CHEMOTHERAPY ACCORDING TO GRALL 2005 PROTOCOL
     Route: 042
     Dates: start: 20140410
  19. PREDNISONE. [Suspect]
     Active Substance: PREDNISONE
     Dosage: INDUCTION CHEMOTHERAPY ACCORDING TO GRALL 2005 PROTOCOL
     Route: 037
     Dates: start: 20140417
  20. CERUBIDINE [Suspect]
     Active Substance: DAUNORUBICIN HYDROCHLORIDE
     Dosage: FORM: POWDER FOR SOLUTION FOR INFUSION. INDUCTION CHEMOTHERAPY ACCORDING TO GRALL 2005 PROTOCOL
     Dates: start: 20140425
  21. CERUBIDINE [Suspect]
     Active Substance: DAUNORUBICIN HYDROCHLORIDE
     Indication: ACUTE LYMPHOCYTIC LEUKAEMIA
     Dosage: FORM: POWDER FOR SOLUTION FOR INFUSION. INDUCTION CHEMOTHERAPY ACCORDING TO GRALL 2005 PROTOCOL
     Route: 042
     Dates: start: 20140410, end: 20140412
  22. KIDROLASE [Suspect]
     Active Substance: ASPARAGINASE
     Indication: ACUTE LYMPHOCYTIC LEUKAEMIA
     Dosage: INDUCTION CHEMOTHERAPY ACCORDING TO GRALL 2005 PROTOCOL
     Route: 042
     Dates: start: 20140417
  23. KIDROLASE [Suspect]
     Active Substance: ASPARAGINASE
     Dosage: INDUCTION CHEMOTHERAPY ACCORDING TO GRALL 2005 PROTOCOL
     Route: 042
     Dates: start: 20140503
  24. METHOTREXATE (METHOTREXATE SODIUM) [Suspect]
     Active Substance: METHOTREXATE SODIUM
     Dosage: INDUCTION CHEMOTHERAPY ACCORDING TO GRALL 2005 PROTOCOL
     Route: 037
     Dates: start: 20140410
  25. VINCRISTINE TEVA [Suspect]
     Active Substance: VINCRISTINE
     Dosage: NEW CONSOLIDATION CHEMOTHERAPY
     Route: 042
     Dates: start: 20140812
  26. PREDNISONE. [Suspect]
     Active Substance: PREDNISONE
     Dosage: INDUCTION CHEMOTHERAPY ACCORDING TO GRALL 2005 PROTOCOL
     Route: 037
     Dates: start: 20140410
  27. KIDROLASE [Suspect]
     Active Substance: ASPARAGINASE
     Dosage: INDUCTION CHEMOTHERAPY ACCORDING TO GRALL 2005 PROTOCOL
     Route: 042
     Dates: start: 20140421
  28. METHOTREXATE (METHOTREXATE SODIUM) [Suspect]
     Active Substance: METHOTREXATE SODIUM
     Dosage: INDUCTION CHEMOTHERAPY ACCORDING TO GRALL 2005 PROTOCOL
     Route: 037
     Dates: start: 20140417
  29. METHOTREXATE (METHOTREXATE SODIUM) [Suspect]
     Active Substance: METHOTREXATE SODIUM
     Dosage: AT DAY 1 OF A NEW CONSOLIDATION CHEMOTHERAPY
     Dates: start: 20140813

REACTIONS (3)
  - Transaminases increased [Recovered/Resolved]
  - Gamma-glutamyltransferase increased [Recovered/Resolved]
  - Blood alkaline phosphatase increased [Recovered/Resolved]

NARRATIVE: CASE EVENT DATE: 20140430
